FAERS Safety Report 22291960 (Version 1)
Quarter: 2023Q2

REPORT INFORMATION
  Report Type: Spontaneous
  Country: DE (occurrence: DE)
  Receive Date: 20230508
  Receipt Date: 20230508
  Transmission Date: 20230721
  Serious: No
  Sender: FDA-Public Use
  Company Number: None

PATIENT
  Sex: Female
  Weight: 48 kg

DRUGS (6)
  1. ATORVASTATIN CALCIUM [Suspect]
     Active Substance: ATORVASTATIN CALCIUM
     Indication: Hypercholesterolaemia
     Dosage: 10 MILLIGRAMS, QD (EVERY 1 DAY)
     Route: 048
     Dates: start: 2017
  2. EZETIMIBE [Suspect]
     Active Substance: EZETIMIBE
     Indication: Hypercholesterolaemia
     Dosage: 10 MILLIGRAMS, QD (EVERY 1 DAY)
     Route: 048
     Dates: start: 2018
  3. ROSUVASTATIN [Suspect]
     Active Substance: ROSUVASTATIN
     Indication: Hypercholesterolaemia
     Dosage: 5 MILLIGRAMS, QD (EVERY 1 DAY)
     Route: 048
     Dates: start: 202210
  4. BEMPEDOIC ACID [Suspect]
     Active Substance: BEMPEDOIC ACID
     Indication: Hypercholesterolaemia
     Dosage: 180 MILLIGRAMS, QD (EVERY 1 DAY)
     Route: 048
     Dates: start: 202103
  5. PRAVASTATIN [Suspect]
     Active Substance: PRAVASTATIN
     Indication: Hypercholesterolaemia
     Dosage: 10 MILLIGRAMS, QD (EVERY 1 DAY)
     Route: 048
     Dates: start: 202205
  6. PRAVASTATIN [Suspect]
     Active Substance: PRAVASTATIN
     Dosage: 20 MILLIGRAMS, QD (EVERY 1 DAY)
     Route: 048
     Dates: start: 202301

REACTIONS (1)
  - Myalgia [Recovered/Resolved]
